FAERS Safety Report 5170823-2 (Version None)
Quarter: 2006Q4

REPORT INFORMATION
  Report Type: 
  Country: None (occurrence: None)
  Receive Date: 20061205
  Receipt Date: 20061205
  Transmission Date: 20070319
  Serious: Yes (Life-Threatening)
  Sender: FDA-Public Use
  Company Number: None

PATIENT
  Age: 73 Year
  Sex: Female
  Weight: 63.5036 kg

DRUGS (1)
  1. LIPITOR [Suspect]
     Indication: MYOCARDIAL INFARCTION
     Dosage: 1 TABLET 1 PER DAY PO
     Route: 048
     Dates: start: 19980429, end: 20061024

REACTIONS (6)
  - AORTIC DISORDER [None]
  - LIVER DISORDER [None]
  - LYMPHOMA [None]
  - MALIGNANT NEOPLASM OF THORAX [None]
  - MASS [None]
  - SALIVARY GLAND CANCER [None]
